FAERS Safety Report 9534701 (Version 4)
Quarter: 2013Q4

REPORT INFORMATION
  Report Type: Spontaneous
  Country: BR (occurrence: BR)
  Receive Date: 20130918
  Receipt Date: 20131104
  Transmission Date: 20140711
  Serious: Yes (Hospitalization, Other)
  Sender: FDA-Public Use
  Company Number: BR-PFIZER INC-2013263906

PATIENT
  Age: 57 Year
  Sex: Male
  Weight: 51 kg

DRUGS (4)
  1. LIPITOR [Suspect]
     Indication: DYSLIPIDAEMIA
     Dosage: 10 MG, ALTERNATE DAY
     Route: 048
     Dates: start: 20100904
  2. CLONAZEPAM [Suspect]
     Dosage: UNK
  3. CARVEDILOL [Concomitant]
     Indication: ANGINA PECTORIS
     Dosage: 0.5 DF, 2X/DAY IN THE MORNING AND AT NIGHT
     Dates: start: 2010
  4. SUSTRATE [Concomitant]
     Indication: ANTICOAGULANT THERAPY
     Dosage: 1 DF, 2X/DAY
     Dates: start: 2010

REACTIONS (4)
  - Road traffic accident [Unknown]
  - Accident at work [Unknown]
  - Limb injury [Unknown]
  - Face injury [Unknown]
